FAERS Safety Report 7575301-9 (Version None)
Quarter: 2011Q2

REPORT INFORMATION
  Report Type: 
  Country: None (occurrence: None)
  Receive Date: 20110627
  Receipt Date: 20110617
  Transmission Date: 20111010
  Serious: Yes (Other)
  Sender: FDA-Public Use
  Company Number: JP-ASTRAZENECA-2011SE37386

PATIENT
  Age: 86 Year
  Sex: Female

DRUGS (12)
  1. CANDESARTAN CILEXETIL [Suspect]
     Route: 048
     Dates: start: 20110609
  2. CARVEDILOL [Concomitant]
     Route: 048
     Dates: start: 20110609
  3. LIVALO [Concomitant]
     Route: 048
  4. ADALAT CC [Concomitant]
     Route: 048
     Dates: start: 20110528, end: 20110604
  5. ALDACTONE [Concomitant]
     Route: 048
     Dates: end: 20110527
  6. CANDESARTAN CILEXETIL [Suspect]
     Indication: HYPERTENSION
     Route: 048
     Dates: start: 20110528, end: 20110605
  7. LASIX [Concomitant]
     Route: 048
     Dates: end: 20110604
  8. ADALAT CC [Concomitant]
     Route: 048
     Dates: end: 20110527
  9. CARVEDILOL [Concomitant]
     Route: 048
     Dates: end: 20110608
  10. LASIX [Concomitant]
     Route: 048
     Dates: start: 20110605
  11. QUINAPRIL HCL [Concomitant]
     Route: 048
     Dates: end: 20110528
  12. ALDACTONE [Concomitant]
     Route: 048
     Dates: start: 20110528, end: 20110604

REACTIONS (1)
  - LOSS OF CONSCIOUSNESS [None]
